FAERS Safety Report 8480262-4 (Version None)
Quarter: 2012Q2

REPORT INFORMATION
  Report Type: 
  Country: None (occurrence: None)
  Receive Date: 20120629
  Receipt Date: 20120620
  Transmission Date: 20120825
  Serious: Yes (Hospitalization, Other)
  Sender: FDA-Public Use
  Company Number: US-ASTRAZENECA-2012SE41522

PATIENT
  Age: 62 Year
  Sex: Female
  Weight: 90.7 kg

DRUGS (6)
  1. LISINOPRIL AND HYDROCHLOROTHIAZIDE [Suspect]
     Dosage: 10/12.5 MG, DAILY
     Route: 048
     Dates: start: 20111201, end: 20111201
  2. LISINOPRIL AND HYDROCHLOROTHIAZIDE [Suspect]
     Indication: HYPERTENSION
     Dosage: 10/12.5 MG, DAILY
     Route: 048
     Dates: start: 20111201, end: 20111201
  3. ACCUPRIL [Suspect]
     Indication: HYPERTENSION
     Route: 048
     Dates: start: 20111201, end: 20120501
  4. LISINOPRIL AND HYDROCHLOROTHIAZIDE [Suspect]
     Dosage: 20/25 MG, DAILY
     Route: 048
     Dates: start: 20111201, end: 20111201
  5. OMEPRAZOLE [Suspect]
     Indication: GASTROOESOPHAGEAL REFLUX DISEASE
     Route: 048
  6. CIPROFLOXACIN [Suspect]
     Indication: URINARY TRACT INFECTION
     Route: 048
     Dates: start: 20111201, end: 20111201

REACTIONS (6)
  - HYPOAESTHESIA [None]
  - DRUG INTOLERANCE [None]
  - LIMB DISCOMFORT [None]
  - CHEST DISCOMFORT [None]
  - LUNG NEOPLASM [None]
  - INTENTIONAL DRUG MISUSE [None]
